FAERS Safety Report 4578525-8 (Version None)
Quarter: 2005Q1

REPORT INFORMATION
  Report Type: 
  Country: None (occurrence: None)
  Receive Date: 20050209
  Receipt Date: 20050125
  Transmission Date: 20050727
  Serious: Yes (Life-Threatening, Hospitalization)
  Sender: FDA-Public Use
  Company Number: IBF20050004

PATIENT
  Age: 17 Year
  Sex: Male
  Weight: 47 kg

DRUGS (2)
  1. IBUPROFEN [Suspect]
     Indication: ANALGESIC EFFECT
     Dosage: 1 DOSE ONCE PO
     Route: 048
     Dates: start: 20040101, end: 20040101
  2. CORTICOSTEROIDS [Concomitant]

REACTIONS (3)
  - ASTHMA [None]
  - CONDITION AGGRAVATED [None]
  - EMOTIONAL DISTRESS [None]
